FAERS Safety Report 15864075 (Version 3)
Quarter: 2019Q1

REPORT INFORMATION
  Report Type: Report from Study
  Country: BR (occurrence: BR)
  Receive Date: 20190124
  Receipt Date: 20190211
  Transmission Date: 20190417
  Serious: Yes (Death, Hospitalization)
  Sender: FDA-Public Use
  Company Number: BR-JNJFOC-20190123913

PATIENT
  Age: 56 Year
  Sex: Female

DRUGS (3)
  1. RIVOTRIL [Concomitant]
     Active Substance: CLONAZEPAM
     Route: 065
  2. INFLIXIMAB, RECOMBINANT [Suspect]
     Active Substance: INFLIXIMAB
     Indication: PSORIATIC ARTHROPATHY
     Route: 042
     Dates: end: 20181101
  3. INFLIXIMAB, RECOMBINANT [Suspect]
     Active Substance: INFLIXIMAB
     Indication: PSORIASIS
     Route: 042
     Dates: end: 20181101

REACTIONS (3)
  - Throat cancer [Unknown]
  - Death [Fatal]
  - Pneumonia [Unknown]

NARRATIVE: CASE EVENT DATE: 201812
